FAERS Safety Report 8926375 (Version 3)
Quarter: 2016Q3

REPORT INFORMATION
  Report Type: Spontaneous
  Country: JP (occurrence: JP)
  Receive Date: 20121127
  Receipt Date: 20160906
  Transmission Date: 20161109
  Serious: Yes (Hospitalization, Other)
  Sender: FDA-Public Use
  Company Number: JP-GLAXOSMITHKLINE-B0841857A

PATIENT
  Age: 85 Year
  Sex: Female
  Weight: 55 kg

DRUGS (9)
  1. LASIX [Suspect]
     Active Substance: FUROSEMIDE
     Indication: HYPERTENSION
     Dosage: 10 MG, QOD
     Route: 048
     Dates: end: 20121029
  2. MERISLON [Concomitant]
     Active Substance: BETAHISTINE MESILATE
     Indication: DIZZINESS
     Dosage: 12 MG, BID
     Dates: end: 20121030
  3. ATORVASTATIN [Concomitant]
     Active Substance: ATORVASTATIN
     Dosage: 10 MG, QD
     Dates: start: 20121106
  4. METHYCOBAL [Concomitant]
     Active Substance: METHYLCOBALAMIN
     Indication: NEURALGIA
     Dosage: 0.5 MG, BID
     Dates: end: 20121030
  5. AMLODIPINE [Concomitant]
     Active Substance: AMLODIPINE BESYLATE
     Indication: HYPERTENSION
     Dosage: 2.5 MG, QD
     Dates: end: 20121030
  6. GENTAMICIN SULFATE. [Concomitant]
     Active Substance: GENTAMICIN SULFATE
     Dosage: UNK
  7. ATORVASTATIN [Concomitant]
     Active Substance: ATORVASTATIN
     Indication: HYPERLIPIDAEMIA
     Dosage: 10 MG, QD
     Dates: end: 20121029
  8. VALTREX [Suspect]
     Active Substance: VALACYCLOVIR HYDROCHLORIDE
     Indication: HERPES ZOSTER
     Dosage: 1000 MG, TID
     Route: 048
     Dates: start: 20121027, end: 20121030
  9. LOXONIN [Concomitant]
     Active Substance: LOXOPROFEN SODIUM
     Dosage: UNK

REACTIONS (19)
  - Oliguria [Recovering/Resolving]
  - Speech disorder [Recovering/Resolving]
  - ECG signs of myocardial ischaemia [Unknown]
  - Cerebral atrophy [Unknown]
  - Dysarthria [Recovering/Resolving]
  - Protein urine present [Unknown]
  - Disorientation [Recovering/Resolving]
  - Dehydration [Recovering/Resolving]
  - Gait disturbance [Recovering/Resolving]
  - Abnormal behaviour [Recovering/Resolving]
  - Acute kidney injury [Recovered/Resolved]
  - Mental disorder [Recovered/Resolved]
  - Vomiting [Recovering/Resolving]
  - Urine output decreased [Recovering/Resolving]
  - Nuclear magnetic resonance imaging brain abnormal [Unknown]
  - Electroencephalogram abnormal [Unknown]
  - Toxic encephalopathy [Recovering/Resolving]
  - Renal impairment [Recovering/Resolving]
  - Overdose [Unknown]

NARRATIVE: CASE EVENT DATE: 201210
